FAERS Safety Report 8552033-1 (Version None)
Quarter: 2012Q3

REPORT INFORMATION
  Report Type: 
  Country: None (occurrence: None)
  Receive Date: 20120730
  Receipt Date: 20120327
  Transmission Date: 20120928
  Serious: Yes (Death, Hospitalization)
  Sender: FDA-Public Use
  Company Number: NL-GENZYME-CLOF-1001358

PATIENT
  Sex: Female
  Weight: 49 kg

DRUGS (7)
  1. CLOFARABINE [Suspect]
     Dosage: 71 MG, QDX5
     Route: 042
     Dates: start: 20101125, end: 20101129
  2. ONCASPAR [Suspect]
     Indication: ACUTE LYMPHOCYTIC LEUKAEMIA
     Dosage: 3206.3 IU, UNK
     Dates: start: 20101101, end: 20101101
  3. ONCASPAR [Suspect]
     Dosage: 3375 IU, UNK
     Dates: start: 20101125, end: 20101125
  4. VINCRISTINE [Suspect]
     Indication: ACUTE LYMPHOCYTIC LEUKAEMIA
     Dosage: 2 MG, UNK
     Dates: start: 20101125, end: 20101125
  5. ITRACONAZOLE [Concomitant]
     Indication: PRODUCT USED FOR UNKNOWN INDICATION
     Dosage: 200 MG, UNK
     Dates: start: 20101101
  6. CLOFARABINE [Suspect]
     Indication: ACUTE LYMPHOCYTIC LEUKAEMIA
     Dosage: 71 MG, QDX5
     Route: 042
     Dates: start: 20101101, end: 20101105
  7. VALACICLOVIR [Concomitant]
     Indication: PRODUCT USED FOR UNKNOWN INDICATION
     Dosage: 1000 MG, UNK
     Dates: start: 20101101

REACTIONS (2)
  - DEATH [None]
  - FEBRILE NEUTROPENIA [None]
